FAERS Safety Report 4931691-4 (Version None)
Quarter: 2006Q1

REPORT INFORMATION
  Report Type: 
  Country: None (occurrence: None)
  Receive Date: 20060303
  Receipt Date: 20051220
  Transmission Date: 20060701
  Serious: Yes (Death)
  Sender: FDA-Public Use
  Company Number: US-BRISTOL-MYERS SQUIBB COMPANY-13255047

PATIENT
  Age: 56 Year
  Sex: Female

DRUGS (2)
  1. ERBITUX [Suspect]
     Indication: COLON CANCER METASTATIC
     Route: 042
     Dates: start: 20040827, end: 20050316
  2. IRINOTECAN HCL [Concomitant]
     Dates: start: 20040801, end: 20041001

REACTIONS (2)
  - BLEPHARITIS [None]
  - MALIGNANT NEOPLASM PROGRESSION [None]
